FAERS Safety Report 17116996 (Version 2)
Quarter: 2020Q1

REPORT INFORMATION
  Report Type: Report from Study
  Country: DE (occurrence: DE)
  Receive Date: 20191205
  Receipt Date: 20200106
  Transmission Date: 20200409
  Serious: Yes (Other)
  Sender: FDA-Public Use
  Company Number: NVSC2019DE059436

PATIENT
  Sex: Female
  Weight: 90 kg

DRUGS (3)
  1. GILENYA [Suspect]
     Active Substance: FINGOLIMOD HYDROCHLORIDE
     Indication: MULTIPLE SCLEROSIS
     Dosage: 0.5 MG, QD
     Route: 048
     Dates: start: 20190225
  2. LAIF [Concomitant]
     Indication: PROPHYLAXIS
     Dosage: 900 UNK, QD
     Route: 065
     Dates: start: 20190328, end: 20190328
  3. VIDISIC [Concomitant]
     Indication: EYE IRRITATION
     Dosage: UNK
     Route: 065
     Dates: start: 20190523

REACTIONS (1)
  - Lymphopenia [Recovered/Resolved]

NARRATIVE: CASE EVENT DATE: 20191128
